FAERS Safety Report 10786447 (Version 1)
Quarter: 2015Q1

REPORT INFORMATION
  Report Type: Spontaneous
  Country: US (occurrence: US)
  Receive Date: 20150211
  Receipt Date: 20150211
  Transmission Date: 20150721
  Serious: No
  Sender: FDA-Public Use
  Company Number: US-SHIRE-US201501100

PATIENT
  Age: 61 Year
  Sex: Female

DRUGS (1)
  1. FOSRENOL [Suspect]
     Active Substance: LANTHANUM CARBONATE
     Indication: PRODUCT USED FOR UNKNOWN INDICATION
     Dosage: 3000 MG (3 X 1000 MG TABLETS), 2X/DAY:BID
     Route: 048
     Dates: start: 201407

REACTIONS (2)
  - Product quality issue [Unknown]
  - Prescribed overdose [Not Recovered/Not Resolved]

NARRATIVE: CASE EVENT DATE: 201407
